FAERS Safety Report 20491482 (Version 15)
Quarter: 2022Q4

REPORT INFORMATION
  Report Type: Report from Study
  Country: IT (occurrence: IT)
  Receive Date: 20220218
  Receipt Date: 20221028
  Transmission Date: 20230113
  Serious: Yes (Other)
  Sender: FDA-Public Use
  Company Number: IT-AMGEN-ITACT2022027420

PATIENT
  Age: 7 Year
  Sex: Male

DRUGS (27)
  1. CARFILZOMIB [Suspect]
     Active Substance: CARFILZOMIB
     Indication: Acute lymphocytic leukaemia
     Dosage: 48 MILLIGRAM
     Route: 042
     Dates: start: 20220210
  2. DEXAMETHASONE [Suspect]
     Active Substance: DEXAMETHASONE
     Indication: Acute lymphocytic leukaemia
     Dosage: 1.25-2.5 MILLIGRAM,
     Route: 065
     Dates: start: 20220206
  3. VINCRISTINE [Suspect]
     Active Substance: VINCRISTINE
     Indication: Acute lymphocytic leukaemia
     Dosage: 1.3 MILLIGRAM
     Route: 065
     Dates: start: 20220210
  4. DAUNORUBICIN [Suspect]
     Active Substance: DAUNORUBICIN
     Indication: Acute lymphocytic leukaemia
     Dosage: 51 MILLIGRAM
     Route: 065
     Dates: start: 20220211
  5. METHOTREXATE [Suspect]
     Active Substance: METHOTREXATE
     Indication: Plasma cell myeloma
     Dosage: 12 MILLIGRAM
     Route: 065
     Dates: start: 20220208, end: 20220208
  6. CAPTOPRIL [Concomitant]
     Active Substance: CAPTOPRIL
     Dosage: 6.25-18.75    MILLIGRAM
     Route: 048
     Dates: start: 20220211, end: 20220221
  7. TRIMETHOPRIM [Concomitant]
     Active Substance: TRIMETHOPRIM
     Dosage: 12-120 MILLIGRAM
     Route: 048
     Dates: start: 20220207, end: 20220215
  8. CEFTAZIDIME [Concomitant]
     Active Substance: CEFTAZIDIME
     Dosage: 700-750 MILLIGRAM
     Route: 042
     Dates: start: 20220206, end: 20220315
  9. PANTOPRAZOLE [Concomitant]
     Active Substance: PANTOPRAZOLE
     Dosage: 10 MILLIGRAM
     Route: 048
     Dates: start: 20220210, end: 20220214
  10. ALLOPURINOL [Concomitant]
     Active Substance: ALLOPURINOL
     Dosage: 150-250 MILLIGRAM
     Route: 048
     Dates: start: 20220206, end: 20220215
  11. POLYETHYLENE GLYCOLS [Concomitant]
     Active Substance: POLYETHYLENE GLYCOLS
     Dosage: 10 GRAM
     Route: 048
     Dates: start: 20220207, end: 20220306
  12. LEVETIRACETAM [Concomitant]
     Active Substance: LEVETIRACETAM
     Dosage: 100-800 MILLIGRAM, 2.5 MILLILITRE
     Dates: start: 20220206, end: 20220227
  13. AMIKACIN [Concomitant]
     Active Substance: AMIKACIN
     Dosage: 450 MILLIGRAM
     Route: 042
     Dates: start: 20220206, end: 20220209
  14. OMEPRAZOLE [Concomitant]
     Active Substance: OMEPRAZOLE
     Dosage: 20 MILLIGRAM
     Route: 040
     Dates: start: 20220207, end: 20220209
  15. ONDANSETRON [Concomitant]
     Active Substance: ONDANSETRON
     Dosage: 4 MILLIGRAM
     Route: 042
     Dates: start: 20220210, end: 20220303
  16. CHLORPHENIRAMINE [Concomitant]
     Active Substance: CHLORPHENIRAMINE
     Dosage: 5 MILLIGRAM
     Route: 042
     Dates: start: 20220208, end: 20220314
  17. HYDROCORTISONE [Concomitant]
     Active Substance: HYDROCORTISONE
     Dosage: 200 MILLIGRAM, 10 MILLIGRAM
     Route: 042
     Dates: start: 20220208, end: 20220314
  18. OMEPRAZOLE [Concomitant]
     Active Substance: OMEPRAZOLE
     Dosage: 10 MILLIGRAM
     Route: 048
     Dates: start: 20220215, end: 20220305
  19. NIFEDIPINE [Concomitant]
     Active Substance: NIFEDIPINE
     Dosage: 2 GTT DROPS
     Route: 048
     Dates: start: 20220211, end: 20220214
  20. FUROSEMIDE [Concomitant]
     Active Substance: FUROSEMIDE
     Dosage: 5 MILLIGRAM
     Route: 042
     Dates: start: 20220210, end: 20220210
  21. CYTARABINE [Concomitant]
     Active Substance: CYTARABINE
     Dosage: 24 MILLIGRAM
     Route: 037
     Dates: start: 20220208, end: 20220208
  22. KETOPROFEN LYSINE [Concomitant]
     Active Substance: KETOPROFEN LYSINE
     Dosage: 40 MILLIGRAM
     Route: 042
     Dates: start: 20220211, end: 20220213
  23. ACETAMINOPHEN [Concomitant]
     Active Substance: ACETAMINOPHEN
     Dosage: 350 MILLIGRAM
     Route: 042
     Dates: start: 20220209, end: 20220224
  24. DAUNORUBICIN [Concomitant]
     Active Substance: DAUNORUBICIN
     Dosage: 51 MILLIGRAM
     Dates: start: 20220211, end: 20220211
  25. PANTOPRAZOLE SODIUM [Concomitant]
     Active Substance: PANTOPRAZOLE SODIUM
     Dosage: 10 MILLIGRAM
     Route: 048
     Dates: start: 20220210, end: 20220214
  26. AMIKACIN [Concomitant]
     Active Substance: AMIKACIN
     Dosage: 450 MILLIGRAM
     Route: 042
     Dates: start: 20220206, end: 20220209
  27. VINCRISTINE [Concomitant]
     Active Substance: VINCRISTINE
     Dosage: 1.3 MILLIGRAM
     Dates: start: 20220210, end: 20220224

REACTIONS (1)
  - Posterior reversible encephalopathy syndrome [Not Recovered/Not Resolved]

NARRATIVE: CASE EVENT DATE: 20220213
